FAERS Safety Report 15736054 (Version 1)
Quarter: 2018Q4

REPORT INFORMATION
  Report Type: Spontaneous
  Country: GB (occurrence: GB)
  Receive Date: 20181218
  Receipt Date: 20181218
  Transmission Date: 20190205
  Serious: Yes (Other)
  Sender: FDA-Public Use
  Company Number: GB-TEVA-2018-GB-988093

PATIENT
  Age: 75 Year
  Sex: Male
  Weight: 77.11 kg

DRUGS (5)
  1. EMOZUL GASTRO-RESISTANT [Concomitant]
  2. TAMSULOSIN HYDROCHLORIDE. [Concomitant]
     Active Substance: TAMSULOSIN HYDROCHLORIDE
  3. TRIMETHOPRIM. [Suspect]
     Active Substance: TRIMETHOPRIM
     Indication: URINARY TRACT INFECTION
     Route: 048
     Dates: start: 20181112, end: 20181119
  4. FINASTERIDE. [Concomitant]
     Active Substance: FINASTERIDE
  5. LAMOTRIGINE. [Concomitant]
     Active Substance: LAMOTRIGINE

REACTIONS (5)
  - Night sweats [Unknown]
  - Nausea [Recovering/Resolving]
  - Body temperature fluctuation [Unknown]
  - Headache [Unknown]
  - Anxiety [Unknown]

NARRATIVE: CASE EVENT DATE: 20181113
